FAERS Safety Report 4394755-2 (Version None)
Quarter: 2004Q3

REPORT INFORMATION
  Report Type: 
  Country: None (occurrence: None)
  Receive Date: 20040706
  Receipt Date: 20040629
  Transmission Date: 20050211
  Serious: Yes (Hospitalization, Other)
  Sender: FDA-Public Use
  Company Number: FRWYE799203JUN04

PATIENT
  Age: 72 Year
  Sex: Female

DRUGS (5)
  1. RAPAMUNE [Suspect]
     Indication: PROPHYLAXIS AGAINST TRANSPLANT REJECTION
     Dosage: 15 MG ON DAY 0 AND THEN 5 MG DAILY
     Route: 048
     Dates: start: 20040331, end: 20040427
  2. SOLUPRED (PREDNISOLONE SODIUM SULFOBENZOATE) [Concomitant]
  3. CALCITRIOL [Concomitant]
  4. AMLODIPINE BESYLATE [Concomitant]
  5. ATORVASTATIN CALCIUM [Concomitant]

REACTIONS (7)
  - ASTHENIA [None]
  - OEDEMA PERIPHERAL [None]
  - PEMPHIGUS [None]
  - PLEURAL EFFUSION [None]
  - PNEUMONITIS [None]
  - PRURITUS [None]
  - RASH MACULO-PAPULAR [None]
